FAERS Safety Report 25735197 (Version 1)
Quarter: 2025Q3

REPORT INFORMATION
  Report Type: Spontaneous
  Country: EU (occurrence: EU)
  Receive Date: 20250828
  Receipt Date: 20250828
  Transmission Date: 20251021
  Serious: Yes (Life-Threatening, Hospitalization, Other)
  Sender: BRISTOL-MYERS SQUIBB COMPANY
  Company Number: None

PATIENT
  Age: 82 Year
  Sex: Male

DRUGS (2)
  1. NIVOLUMAB [Suspect]
     Active Substance: NIVOLUMAB
     Indication: Epithelioid mesothelioma
     Route: 042
     Dates: start: 20230504, end: 20230524
  2. NELVUTAMIG [Suspect]
     Active Substance: NELVUTAMIG
     Indication: Epithelioid mesothelioma
     Route: 042
     Dates: start: 20230504, end: 20230524

REACTIONS (3)
  - Immune-mediated myositis [Recovering/Resolving]
  - Immune-mediated hepatitis [Recovering/Resolving]
  - Immune-mediated thyroiditis [Recovering/Resolving]

NARRATIVE: CASE EVENT DATE: 20230601
